FAERS Safety Report 20737561 (Version 2)
Quarter: 2022Q2

REPORT INFORMATION
  Report Type: Report from Study
  Country: US (occurrence: US)
  Receive Date: 20220422
  Receipt Date: 20220518
  Transmission Date: 20220721
  Serious: Yes (Other)
  Sender: FDA-Public Use
  Company Number: US-BRISTOL-MYERS SQUIBB COMPANY-2022-020962

PATIENT
  Age: 66 Year
  Sex: Female
  Weight: 63.9 kg

DRUGS (2)
  1. REVLIMID [Suspect]
     Active Substance: LENALIDOMIDE
     Indication: Plasma cell myeloma
     Route: 065
  2. REVLIMID [Suspect]
     Active Substance: LENALIDOMIDE
     Indication: Deficiency anaemia
     Dosage: 28/BTL?21 DAYS ON, 7 DAYS OFF
     Route: 048

REACTIONS (3)
  - Pruritus [Unknown]
  - Blood test abnormal [Unknown]
  - Product dose omission in error [Unknown]
